FAERS Safety Report 9524739 (Version 2)
Quarter: 2014Q1

REPORT INFORMATION
  Report Type: Spontaneous
  Country: JP (occurrence: JP)
  Receive Date: 20130916
  Receipt Date: 20140219
  Transmission Date: 20141002
  Serious: Yes (Hospitalization)
  Sender: FDA-Public Use
  Company Number: PHHY2013JP101654

PATIENT
  Sex: Female

DRUGS (5)
  1. RIVASTIGMIN [Suspect]
     Indication: DEMENTIA ALZHEIMER^S TYPE
     Dosage: 1.9 MG/24 HOURS (4.5 MG, ONCE A DAY)
     Route: 062
     Dates: start: 201212
  2. RIVASTIGMIN [Suspect]
     Dosage: 4.6MG/24 HOURS (9 MG, ONCE A DAY)
     Route: 062
  3. RIVASTIGMIN [Suspect]
     Dosage: 6.9 MG/24 HOURS (13.5 MG, ONCE A DAY)
     Route: 062
  4. ARICEPT [Concomitant]
     Dosage: 5 MG PER DAY
  5. ARICEPT [Concomitant]
     Dosage: 10 MG PER DAY
     Dates: start: 201303

REACTIONS (3)
  - Renal impairment [Unknown]
  - Drug prescribing error [Unknown]
  - Off label use [Unknown]
